FAERS Safety Report 8933304 (Version 2)
Quarter: 2013Q2

REPORT INFORMATION
  Report Type: Spontaneous
  Country: US (occurrence: US)
  Receive Date: 20121129
  Receipt Date: 20130423
  Transmission Date: 20140414
  Serious: No
  Sender: FDA-Public Use
  Company Number: US-009507513-1211USA011534

PATIENT
  Age: 59 Year
  Sex: Female
  Weight: 97.52 kg

DRUGS (4)
  1. PEGINTRON [Suspect]
     Indication: HEPATITIS C
     Dosage: 150 MICROGRAM, QW
     Route: 058
     Dates: start: 20120911
  2. REBETOL [Suspect]
     Indication: HEPATITIS C
     Dosage: 3 DF, BID
     Route: 048
     Dates: start: 20120911
  3. REBETOL [Suspect]
     Dosage: 2 IN THE MORNING AND ONE IN THE EVENING
     Route: 048
     Dates: start: 20121018
  4. VICTRELIS [Suspect]
     Indication: HEPATITIS C
     Dosage: UNK
     Route: 048
     Dates: start: 20121009

REACTIONS (4)
  - Anaemia [Recovered/Resolved]
  - Palpitations [Recovered/Resolved]
  - Haemoglobin decreased [Recovered/Resolved]
  - Dyspnoea [Unknown]
